FAERS Safety Report 10045468 (Version 2)
Quarter: 2014Q2

REPORT INFORMATION
  Report Type: Spontaneous
  Country: US (occurrence: US)
  Receive Date: 20140328
  Receipt Date: 20140430
  Transmission Date: 20141212
  Serious: Yes (Other)
  Sender: FDA-Public Use
  Company Number: US-FRI-1000065825

PATIENT
  Age: 54 Year
  Sex: Female
  Weight: 61 kg

DRUGS (2)
  1. LINZESS [Suspect]
     Dosage: 290MCG
     Route: 048
     Dates: start: 201312, end: 201404
  2. LINZESS [Suspect]
     Dosage: 290MCG
     Route: 048
     Dates: start: 201404, end: 201404

REACTIONS (2)
  - Weight increased [Recovered/Resolved]
  - Sinusitis [Not Recovered/Not Resolved]
